FAERS Safety Report 9650678 (Version 3)
Quarter: 2013Q4

REPORT INFORMATION
  Report Type: Spontaneous
  Country: JP (occurrence: JP)
  Receive Date: 20131029
  Receipt Date: 20131115
  Transmission Date: 20140711
  Serious: Yes (Other)
  Sender: FDA-Public Use
  Company Number: JP-ROCHE-1292974

PATIENT
  Age: 55 Year
  Sex: Female
  Weight: 59 kg

DRUGS (3)
  1. BONVIVA [Suspect]
     Indication: OSTEOPOROSIS
     Route: 042
     Dates: start: 20131004, end: 20131004
  2. ZOMIG [Suspect]
     Indication: MIGRAINE
     Dosage: ONLY AT THE SICK HEADACHE
     Route: 048
     Dates: start: 20090909, end: 20131007
  3. VOLTAREN [Suspect]
     Indication: MIGRAINE
     Dosage: ONLY AT THE SICK HEADACHE
     Route: 048
     Dates: start: 20090909, end: 20131007

REACTIONS (1)
  - Colitis ischaemic [Recovered/Resolved]
